FAERS Safety Report 12435131 (Version 1)
Quarter: 2016Q2

REPORT INFORMATION
  Report Type: Spontaneous
  Country: US (occurrence: US)
  Receive Date: 20160603
  Receipt Date: 20160603
  Transmission Date: 20160815
  Serious: No
  Sender: FDA-Public Use
  Company Number: US-ROCHE-1733539

PATIENT
  Sex: Female

DRUGS (1)
  1. XELODA [Suspect]
     Active Substance: CAPECITABINE
     Indication: PRODUCT USED FOR UNKNOWN INDICATION
     Dosage: 3 TABLETS IN THE PM, 4 TABLETS IN THE AM?14 DAYS OFF, 7 DAYS ON
     Route: 048
     Dates: start: 20151028

REACTIONS (5)
  - Abdominal discomfort [Unknown]
  - Flatulence [Unknown]
  - Skin exfoliation [Unknown]
  - Pain in extremity [Unknown]
  - Oral discomfort [Unknown]
